FAERS Safety Report 8270015-4 (Version None)
Quarter: 2012Q2

REPORT INFORMATION
  Report Type: 
  Country: None (occurrence: None)
  Receive Date: 20120410
  Receipt Date: 20120404
  Transmission Date: 20120825
  Serious: Yes (Death)
  Sender: FDA-Public Use
  Company Number: DE-B.I. PHARMACEUTICALS,INC./RIDGEFIELD-2012-DE-00966DE

PATIENT
  Age: 80 Year
  Sex: Female

DRUGS (2)
  1. ASPIRIN [Concomitant]
  2. PRADAXA [Suspect]

REACTIONS (1)
  - CEREBROVASCULAR ACCIDENT [None]
